FAERS Safety Report 14365191 (Version 4)
Quarter: 2018Q3

REPORT INFORMATION
  Report Type: Spontaneous
  Country: FR (occurrence: FR)
  Receive Date: 20180108
  Receipt Date: 20180724
  Transmission Date: 20181010
  Serious: Yes (Hospitalization)
  Sender: FDA-Public Use
  Company Number: PHHY2017FR190411

PATIENT
  Age: 50 Year
  Sex: Female
  Weight: 56 kg

DRUGS (15)
  1. DEXAMETHASONE. [Suspect]
     Active Substance: DEXAMETHASONE
     Dosage: 20 MG, CYCLIC (DAY 1,2,8 AND 15)
     Route: 048
     Dates: start: 20161128, end: 20161205
  2. CEFOTAXIME [Concomitant]
     Active Substance: CEFOTAXIME SODIUM
     Indication: MENINGITIS
     Dosage: UNK
     Route: 065
     Dates: start: 20161213, end: 20161214
  3. ZOPHREN [Suspect]
     Active Substance: ONDANSETRON
     Indication: PROPHYLAXIS OF NAUSEA AND VOMITING
     Dosage: 8 MG, CYCLIC  (8 MG/4ML)
     Route: 042
  4. LEVACT [Suspect]
     Active Substance: BENDAMUSTINE HYDROCHLORIDE
     Indication: PLASMA CELL MYELOMA
     Dosage: 186 MG, CYCLIC(D1 AND D2)
     Route: 042
  5. DEXAMETHASONE. [Suspect]
     Active Substance: DEXAMETHASONE
     Indication: PLASMA CELL MYELOMA
     Dosage: UNK UNK, CYCLIC
     Route: 048
  6. VELCADE [Suspect]
     Active Substance: BORTEZOMIB
     Dosage: 2 MG, QW (D 1, 8 AND 15)
     Route: 058
     Dates: start: 20161128, end: 20161205
  7. AMOXICILLIN. [Concomitant]
     Active Substance: AMOXICILLIN
     Indication: MENINGITIS
     Dosage: UNK
     Route: 065
     Dates: start: 20161213, end: 20161214
  8. DUROGESIC [Concomitant]
     Active Substance: FENTANYL
     Dosage: UNK UNK, UNKNOWN FREQUENCY
     Route: 062
  9. ZOPHREN [Suspect]
     Active Substance: ONDANSETRON
     Dosage: 8 MG, CYCLIC (D1 AND D2)
     Route: 042
     Dates: start: 20161128, end: 20161129
  10. DUROGESIC [Concomitant]
     Active Substance: FENTANYL
     Indication: BONE PAIN
     Dosage: UNK (UG/HR)
     Route: 062
  11. ZOVIRAX [Concomitant]
     Active Substance: ACYCLOVIR
     Indication: MENINGITIS
     Dosage: UNK
     Route: 065
     Dates: start: 20161213, end: 20161216
  12. BACTRIM [Concomitant]
     Active Substance: SULFAMETHOXAZOLE\TRIMETHOPRIM
     Indication: INFECTION PROPHYLAXIS
     Dosage: UNK
     Route: 065
     Dates: start: 20161214
  13. NIMOTOP [Concomitant]
     Active Substance: NIMODIPINE
     Indication: PRODUCT USED FOR UNKNOWN INDICATION
     Dosage: 2 MG, UNK
     Route: 065
     Dates: start: 20161216, end: 20161223
  14. VELCADE [Suspect]
     Active Substance: BORTEZOMIB
     Indication: PLASMA CELL MYELOMA
     Dosage: 2 MG, CYCLIC (D1, D8 AND D15)
     Route: 058
  15. LEVACT [Suspect]
     Active Substance: BENDAMUSTINE HYDROCHLORIDE
     Dosage: 186 MG, CYCLIC (D1 AND D2)(C6D1)
     Route: 042
     Dates: start: 20161128, end: 20161129

REACTIONS (10)
  - White blood cell count decreased [Unknown]
  - Speech disorder [Recovered/Resolved]
  - Product use in unapproved indication [Unknown]
  - Hemianopia homonymous [Unknown]
  - Hypokalaemia [Unknown]
  - Hemiparesis [Recovered/Resolved]
  - Cerebral vasoconstriction [Recovered/Resolved]
  - Confusional state [Recovered/Resolved]
  - Pyrexia [Unknown]
  - Ventricular extrasystoles [Unknown]

NARRATIVE: CASE EVENT DATE: 20160118
